FAERS Safety Report 5731980-X (Version None)
Quarter: 2008Q2

REPORT INFORMATION
  Report Type: 
  Country: None (occurrence: None)
  Receive Date: 20080508
  Receipt Date: 20080428
  Transmission Date: 20081010
  Serious: Yes (Hospitalization, Other)
  Sender: FDA-Public Use
  Company Number: US-JNJFOC-20071100985

PATIENT
  Sex: Male
  Weight: 68.04 kg

DRUGS (12)
  1. INVEGA [Suspect]
     Indication: SCHIZOPHRENIA
     Route: 048
  2. SEROQUEL [Concomitant]
  3. SEROQUEL [Concomitant]
  4. SEROQUEL [Concomitant]
  5. SEROQUEL [Concomitant]
     Indication: SCHIZOPHRENIA
  6. OMEGA [Concomitant]
  7. MAALOX [Concomitant]
     Route: 048
  8. ACETAMINOPHEN [Concomitant]
     Indication: PAIN
     Route: 048
  9. ACETAMINOPHEN [Concomitant]
     Indication: HEADACHE
     Route: 048
  10. ACETAMINOPHEN [Concomitant]
     Indication: PYREXIA
     Dosage: 650 MG EVERY 4 HOURS AS NECESSARY
     Route: 048
  11. COGENTIN [Concomitant]
     Indication: EXTRAPYRAMIDAL DISORDER
     Dosage: EVERY 4 HOURS AS NEEDED.
     Route: 048
  12. MOTRIN [Concomitant]
     Indication: PAIN
     Dosage: EVERY 6 HOURS AS NEEDED
     Route: 048

REACTIONS (2)
  - CONVULSION [None]
  - SUPRAVENTRICULAR TACHYCARDIA [None]
